FAERS Safety Report 9057328 (Version 2)
Quarter: 2013Q3

REPORT INFORMATION
  Report Type: Spontaneous
  Country: CA (occurrence: CA)
  Receive Date: 20130201
  Receipt Date: 20130905
  Transmission Date: 20140515
  Serious: Yes (Other)
  Sender: FDA-Public Use
  Company Number: CA-ABBOTT-13P-028-1042354-00

PATIENT
  Age: 8 Year
  Sex: Female
  Weight: 52 kg

DRUGS (3)
  1. LUPRON DEPOT [Suspect]
     Indication: PRECOCIOUS PUBERTY
     Route: 030
     Dates: start: 20091116, end: 20101102
  2. LUPRON [Suspect]
     Indication: PRECOCIOUS PUBERTY
     Dates: start: 20101102, end: 20111130
  3. LEUPROLIDE [Suspect]
     Indication: PRODUCT USED FOR UNKNOWN INDICATION
     Route: 058

REACTIONS (9)
  - Abnormal behaviour [Recovered/Resolved]
  - Fatigue [Recovered/Resolved]
  - Injection site abscess [Recovered/Resolved]
  - Injection site abscess sterile [Recovered/Resolved]
  - Injection site infection [Recovered/Resolved]
  - Mood altered [Recovered/Resolved]
  - Mood altered [Recovered/Resolved]
  - Somnolence [Recovered/Resolved]
  - Somnolence [Unknown]
